FAERS Safety Report 10617928 (Version 7)
Quarter: 2016Q1

REPORT INFORMATION
  Report Type: Report from Study
  Country: HU (occurrence: HU)
  Receive Date: 20141201
  Receipt Date: 20160107
  Transmission Date: 20160525
  Serious: Yes (Hospitalization)
  Sender: FDA-Public Use
  Company Number: HU-AMGEN-HUNCT2014092628

PATIENT
  Age: 66 Year
  Sex: Female
  Weight: 45 kg

DRUGS (12)
  1. VITAMIN D                          /00107901/ [Concomitant]
     Active Substance: ERGOCALCIFEROL
     Dosage: 400 IU, UNK
     Route: 048
     Dates: start: 20120718
  2. AMG 785 [Suspect]
     Active Substance: ROMOSOZUMAB
     Indication: OSTEOPOROSIS POSTMENOPAUSAL
     Dosage: UNK
     Route: 058
     Dates: start: 20120817, end: 20130717
  3. DENOSUMAB [Suspect]
     Active Substance: DENOSUMAB
     Indication: OSTEOPOROSIS POSTMENOPAUSAL
     Dosage: 1 ML, UNK
     Route: 058
     Dates: start: 20130816, end: 20140827
  4. CALCIUM [Concomitant]
     Active Substance: CALCIUM
     Dosage: 600 MG, UNK
     Route: 048
     Dates: start: 20120719
  5. PENTOXIFYLLIN [Concomitant]
     Dosage: 400 MG, UNK
     Route: 048
     Dates: start: 2005
  6. KALIUM CHLORID [Concomitant]
     Dosage: 600 MG, UNK
     Route: 048
     Dates: start: 2002
  7. DICLOFENAC [Concomitant]
     Active Substance: DICLOFENAC
     Dosage: 10 MG, UNK
     Route: 062
     Dates: start: 20130328
  8. ENALAPRIL [Concomitant]
     Active Substance: ENALAPRIL
     Dosage: 10 MG, UNK
     Route: 048
     Dates: start: 2002
  9. CLOPAMIDE [Concomitant]
     Active Substance: CLOPAMIDE
     Dosage: 10 MG, UNK
     Route: 048
     Dates: start: 2002
  10. ACETYLSALICYLIC ACID [Concomitant]
     Active Substance: ASPIRIN
     Dosage: 100 MG, UNK
     Route: 048
     Dates: start: 2002
  11. TILACTASE [Concomitant]
     Dosage: 1 UNK, UNK
     Route: 048
     Dates: start: 20110326
  12. BETAHISTINE [Concomitant]
     Active Substance: BETAHISTINE
     Dosage: 16 MG, UNK
     Route: 048
     Dates: start: 2005

REACTIONS (1)
  - Lung neoplasm malignant [Recovered/Resolved]

NARRATIVE: CASE EVENT DATE: 20141125
